FAERS Safety Report 8139504-7 (Version None)
Quarter: 2012Q1

REPORT INFORMATION
  Report Type: 
  Country: None (occurrence: None)
  Receive Date: 20120215
  Receipt Date: 20120206
  Transmission Date: 20120608
  Serious: Yes (Other)
  Sender: FDA-Public Use
  Company Number: US-ELI_LILLY_AND_COMPANY-US201202002303

PATIENT
  Sex: Female

DRUGS (5)
  1. LANTUS [Concomitant]
     Dosage: UNK
  2. ZOCOR [Concomitant]
     Dosage: UNK
     Dates: start: 20110801
  3. HUMALOG [Suspect]
     Dosage: UNK, PRN
     Dates: start: 20020101
  4. ZESTRIL [Concomitant]
     Dosage: UNK
     Dates: start: 20110801
  5. HUMALOG [Suspect]
     Indication: DIABETES MELLITUS
     Dosage: UNK UNK, PRN
     Dates: start: 20020101

REACTIONS (7)
  - HIP FRACTURE [None]
  - CATARACT [None]
  - FALL [None]
  - DRY SKIN [None]
  - CEREBROVASCULAR ACCIDENT [None]
  - TRANSIENT ISCHAEMIC ATTACK [None]
  - RASH [None]
